FAERS Safety Report 7691185-2 (Version None)
Quarter: 2011Q3

REPORT INFORMATION
  Report Type: 
  Country: None (occurrence: None)
  Receive Date: 20110815
  Receipt Date: 20110802
  Transmission Date: 20111222
  Serious: Yes (Life-Threatening, Hospitalization)
  Sender: FDA-Public Use
  Company Number: TCI2011A03529

PATIENT
  Age: 62 Year
  Sex: Male

DRUGS (4)
  1. ACTOS [Suspect]
     Indication: DIABETES MELLITUS
     Dosage: 15 MG (15 MG,1 IN 1 D)
     Route: 048
     Dates: start: 20091023
  2. AMARYL [Concomitant]
  3. KINEX (EPALRESTAT) [Concomitant]
  4. BASEN OD TABLETS [Concomitant]

REACTIONS (4)
  - HAEMATURIA [None]
  - HYPOAESTHESIA [None]
  - BLADDER CANCER [None]
  - HYPERTENSION [None]
